FAERS Safety Report 5267236-1 (Version None)
Quarter: 2007Q1

REPORT INFORMATION
  Report Type: 
  Country: None (occurrence: None)
  Receive Date: 20070316
  Receipt Date: 20070307
  Transmission Date: 20070707
  Serious: Yes (Hospitalization, Disabling)
  Sender: FDA-Public Use
  Company Number: PHRM2007FR00995

PATIENT
  Age: 79 Year
  Sex: Female
  Weight: 42 kg

DRUGS (1)
  1. ZOMETA [Suspect]
     Indication: METASTASES TO BONE
     Dosage: 4 MG EVERY THREE WEEKS
     Route: 042
     Dates: start: 20030213, end: 20040401

REACTIONS (6)
  - ACUTE PULMONARY OEDEMA [None]
  - ARTERIOVENOUS FISTULA OPERATION [None]
  - CREATININE RENAL CLEARANCE DECREASED [None]
  - HYPOCALCAEMIA [None]
  - RENAL FAILURE CHRONIC [None]
  - SECONDARY HYPERTENSION [None]
